FAERS Safety Report 9916244 (Version 2)
Quarter: 2014Q1

REPORT INFORMATION
  Report Type: Spontaneous
  Country: US (occurrence: US)
  Receive Date: 20140221
  Receipt Date: 20140221
  Transmission Date: 20141002
  Serious: Yes (Other)
  Sender: FDA-Public Use
  Company Number: US-GE HEALTHCARE MEDICAL DIAGNOSTICS-OSCN-PR-0805S-0292

PATIENT
  Age: 81 Year
  Sex: Female

DRUGS (6)
  1. OMNISCAN [Suspect]
     Indication: CONFUSIONAL STATE
     Route: 042
     Dates: start: 20000926, end: 20000926
  2. OMNISCAN [Suspect]
     Indication: DYSARTHRIA
     Route: 042
     Dates: start: 20010817, end: 20010817
  3. OMNISCAN [Suspect]
     Indication: HYPERTENSION
     Route: 042
     Dates: start: 20050711, end: 20050711
  4. OMNISCAN [Suspect]
     Indication: RENAL FAILURE CHRONIC
     Route: 042
     Dates: start: 20050714, end: 20050714
  5. OMNISCAN [Suspect]
     Indication: CEREBRAL INFARCTION
  6. OMNISCAN [Suspect]
     Indication: CAROTID ARTERY STENOSIS

REACTIONS (1)
  - Nephrogenic systemic fibrosis [Not Recovered/Not Resolved]
